FAERS Safety Report 6172357-5 (Version None)
Quarter: 2009Q2

REPORT INFORMATION
  Report Type: 
  Country: None (occurrence: None)
  Receive Date: 20090429
  Receipt Date: 20090223
  Transmission Date: 20091009
  Serious: No
  Sender: FDA-Public Use
  Company Number: US-BAYER-200910644BCC

PATIENT
  Age: 34 Year
  Sex: Male
  Weight: 122 kg

DRUGS (2)
  1. ALEVE [Suspect]
     Indication: ARTHRALGIA
     Dosage: TOTAL DAILY DOSE: 440 MG  UNIT DOSE: 220 MG
     Route: 048
     Dates: start: 20081001, end: 20081001
  2. ALEVE [Suspect]
     Dosage: TOTAL DAILY DOSE: 220 MG  UNIT DOSE: 220 MG
     Route: 048
     Dates: start: 20081001, end: 20090201

REACTIONS (4)
  - ABDOMINAL PAIN [None]
  - RASH [None]
  - RENAL PAIN [None]
  - URINE ODOUR ABNORMAL [None]
